FAERS Safety Report 20612706 (Version 2)
Quarter: 2022Q4

REPORT INFORMATION
  Report Type: Spontaneous
  Country: DE (occurrence: DE)
  Receive Date: 20220318
  Receipt Date: 20221002
  Transmission Date: 20230113
  Serious: Yes (Hospitalization, Other)
  Sender: FDA-Public Use
  Company Number: DE-TEVA-2022-DE-2015385

PATIENT
  Age: 62 Year
  Sex: Female

DRUGS (3)
  1. VALSARTAN [Suspect]
     Active Substance: VALSARTAN
     Indication: Hypertension
     Dosage: 160MG/25 MG,  98 TABLETS IN TOTAL
     Route: 048
     Dates: start: 2018
  2. Metamizol-sodium [Concomitant]
     Indication: Product used for unknown indication
  3. METOPROLOL [Concomitant]
     Active Substance: METOPROLOL
     Indication: Product used for unknown indication

REACTIONS (36)
  - Abdominal pain lower [Unknown]
  - Abdominal pain upper [Unknown]
  - Diarrhoea [Unknown]
  - Gallbladder polyp [Unknown]
  - Cholecystitis chronic [Unknown]
  - Mental impairment [Unknown]
  - Benign neoplasm [Unknown]
  - Fear of disease [Unknown]
  - Product contamination [Unknown]
  - Impaired quality of life [Unknown]
  - Anxiety disorder [Unknown]
  - Fear [Unknown]
  - Discomfort [Unknown]
  - Palpitations [Unknown]
  - Hyperhidrosis [Unknown]
  - Tremor [Unknown]
  - Dry mouth [Unknown]
  - Suffocation feeling [Unknown]
  - Hyperventilation [Unknown]
  - Chest pain [Unknown]
  - Feeling abnormal [Unknown]
  - Nausea [Unknown]
  - Dizziness [Unknown]
  - Feeling hot [Unknown]
  - Chills [Unknown]
  - Restlessness [Unknown]
  - Muscle tightness [Unknown]
  - Gastrointestinal disorder [Unknown]
  - Sleep disorder [Unknown]
  - Headache [Unknown]
  - Chest pain [Unknown]
  - Ovarian disorder [Unknown]
  - Fear of death [Unknown]
  - Insomnia [Unknown]
  - Gallbladder disorder [Unknown]
  - Liver disorder [Unknown]

NARRATIVE: CASE EVENT DATE: 20180101
